FAERS Safety Report 17503089 (Version 4)
Quarter: 2020Q2

REPORT INFORMATION
  Report Type: Report from Study
  Country: US (occurrence: US)
  Receive Date: 20200305
  Receipt Date: 20200529
  Transmission Date: 20200713
  Serious: Yes (Other)
  Sender: FDA-Public Use
  Company Number: US-PFIZER INC-2020006925

PATIENT
  Age: 81 Year
  Sex: Female

DRUGS (4)
  1. IBRANCE [Suspect]
     Active Substance: PALBOCICLIB
     Dosage: 125 MG, 21 DAYS ON, 7 DAYS OFF
     Route: 048
     Dates: start: 20200103, end: 2020
  2. IBRANCE [Suspect]
     Active Substance: PALBOCICLIB
     Dosage: 125 MG, EVERY OTHER DAY
     Route: 048
  3. IBRANCE [Suspect]
     Active Substance: PALBOCICLIB
     Indication: BREAST CANCER FEMALE
     Dosage: 125 MG, ONCE DAILY, 21 DAYS ON, 7 DAYS OFF
     Route: 048
     Dates: start: 201912
  4. IBRANCE [Suspect]
     Active Substance: PALBOCICLIB
     Dosage: 100 MG, CYCLIC (21 DAYS ON, 7 DAYS OFF)
     Route: 048
     Dates: start: 20200228

REACTIONS (17)
  - Abdominal pain upper [Unknown]
  - Red blood cell count decreased [Recovering/Resolving]
  - Gastric disorder [Unknown]
  - Arthralgia [Recovering/Resolving]
  - Oropharyngeal pain [Unknown]
  - Headache [Recovering/Resolving]
  - Chills [Unknown]
  - Candida infection [Recovered/Resolved]
  - Bone marrow failure [Unknown]
  - Fatigue [Unknown]
  - Productive cough [Recovering/Resolving]
  - Vaginal haemorrhage [Unknown]
  - Nausea [Recovering/Resolving]
  - Abdominal pain [Recovering/Resolving]
  - Cough [Unknown]
  - White blood cell count decreased [Recovering/Resolving]
  - Paraesthesia [Unknown]

NARRATIVE: CASE EVENT DATE: 2020
